FAERS Safety Report 6451998-1 (Version None)
Quarter: 2009Q4

REPORT INFORMATION
  Report Type: 
  Country: None (occurrence: None)
  Receive Date: 20091123
  Receipt Date: 20091112
  Transmission Date: 20100525
  Serious: Yes (Hospitalization)
  Sender: FDA-Public Use
  Company Number: US-BAXTER-2009BH016893

PATIENT
  Sex: Female

DRUGS (3)
  1. DIANEAL [Suspect]
     Indication: PERITONEAL DIALYSIS
     Route: 033
     Dates: start: 20091001, end: 20091101
  2. DIANEAL [Suspect]
     Route: 033
     Dates: start: 20000101, end: 20091001
  3. DIANEAL [Suspect]
     Route: 033
     Dates: start: 20091101

REACTIONS (4)
  - DEVICE RELATED INFECTION [None]
  - MEDICAL DEVICE COMPLICATION [None]
  - MUSCLE SPASMS [None]
  - THROMBOSIS IN DEVICE [None]
